FAERS Safety Report 19167816 (Version 1)
Quarter: 2021Q2

REPORT INFORMATION
  Report Type: Spontaneous
  Country: US (occurrence: US)
  Receive Date: 20210420
  Receipt Date: 20210420
  Transmission Date: 20210717
  Serious: Yes (Death)
  Sender: FDA-Public Use
  Company Number: None

PATIENT
  Age: 77 Year
  Sex: Male
  Weight: 117 kg

DRUGS (1)
  1. APIXABAN (APIXABAN 5MG TAB) [Suspect]
     Active Substance: APIXABAN
     Indication: ATRIAL FIBRILLATION
     Route: 048
     Dates: start: 20200202, end: 20210323

REACTIONS (6)
  - Cough [None]
  - Nasal congestion [None]
  - Dyspnoea [None]
  - Haemorrhage intracranial [None]
  - Headache [None]
  - Blood pressure systolic increased [None]

NARRATIVE: CASE EVENT DATE: 20210323
